FAERS Safety Report 9968246 (Version 1)
Quarter: 2014Q1

REPORT INFORMATION
  Report Type: Report from Study
  Country: US (occurrence: US)
  Receive Date: 20140306
  Receipt Date: 20140306
  Transmission Date: 20141002
  Serious: No
  Sender: FDA-Public Use
  Company Number: US-ABBVIE-13P-163-1140342-00

PATIENT
  Sex: Female
  Weight: 69.92 kg

DRUGS (11)
  1. HUMIRA [Suspect]
     Indication: CROHN^S DISEASE
     Dates: start: 2011, end: 20130820
  2. FENTANYL [Suspect]
     Indication: COLONOSCOPY
  3. VERSED [Suspect]
     Indication: COLONOSCOPY
  4. CHOLESTERMINE [Concomitant]
     Indication: CROHN^S DISEASE
  5. VITAMIN B [Concomitant]
     Indication: NEUROPATHY PERIPHERAL
  6. GABAPENTIN [Concomitant]
     Indication: NEURALGIA
  7. TORADOL [Concomitant]
     Indication: MIGRAINE
  8. CLONAZEPAM [Concomitant]
     Indication: ANXIETY
  9. NORTRIPTYLINE [Concomitant]
     Indication: NEURALGIA
  10. TOPIRAMATE [Concomitant]
     Indication: MIGRAINE PROPHYLAXIS
  11. ASTELIN [Concomitant]
     Indication: HYPERSENSITIVITY

REACTIONS (3)
  - Diarrhoea [Not Recovered/Not Resolved]
  - Abdominal pain [Not Recovered/Not Resolved]
  - Vomiting [Recovered/Resolved]
